FAERS Safety Report 6767374-8 (Version None)
Quarter: 2010Q2

REPORT INFORMATION
  Report Type: 
  Country: None (occurrence: None)
  Receive Date: 20100614
  Receipt Date: 20100513
  Transmission Date: 20101027
  Serious: No
  Sender: FDA-Public Use
  Company Number: US-BAYER-201015618BCC

PATIENT
  Age: 40 Year
  Sex: Male
  Weight: 91 kg

DRUGS (8)
  1. ALEVE [Suspect]
     Indication: ARTHRALGIA
     Dosage: UNIT DOSE: 220 MG
     Route: 048
  2. NAPROSYN [Concomitant]
     Dosage: TOTAL DAILY DOSE: 1000 MG  UNIT DOSE: 500 MG
     Route: 065
  3. PREDNISONE [Concomitant]
     Route: 065
  4. HYDROCODONE [Concomitant]
     Route: 065
  5. CLOBETASOL PROPIONATE [Concomitant]
     Route: 065
  6. BETAMETHASONE [Concomitant]
     Route: 065
  7. PREDNISOLONE EYE DROPS [Concomitant]
     Route: 047
  8. TRIAMCINOLONE [Concomitant]
     Route: 065

REACTIONS (1)
  - DRUG SCREEN POSITIVE [None]
